FAERS Safety Report 4469417-3 (Version None)
Quarter: 2004Q4

REPORT INFORMATION
  Report Type: 
  Country: None (occurrence: None)
  Receive Date: 20041008
  Receipt Date: 20040720
  Transmission Date: 20050328
  Serious: No
  Sender: FDA-Public Use
  Company Number: US-BRISTOL-MYERS SQUIBB COMPANY-12648713

PATIENT
  Age: 70 Year
  Sex: Female
  Weight: 58 kg

DRUGS (6)
  1. AVAPRO [Suspect]
     Indication: HYPERTENSION
     Route: 048
     Dates: start: 20040501
  2. LEVOTHYROXINE SODIUM [Concomitant]
     Indication: HYPOTHYROIDISM
     Route: 048
  3. METOPROLOL SUCCINATE [Concomitant]
     Indication: HYPERTENSION
     Route: 048
  4. LANSOPRAZOLE [Concomitant]
     Indication: DYSPEPSIA
     Route: 048
  5. MONTELUKAST [Concomitant]
     Indication: ASTHMA
     Route: 055
  6. CETIRIZINE HCL [Concomitant]
     Indication: HYPERSENSITIVITY
     Route: 048

REACTIONS (3)
  - MUSCLE CRAMP [None]
  - OLIGURIA [None]
  - URINARY TRACT INFECTION [None]
